FAERS Safety Report 5469593-X (Version None)
Quarter: 2007Q3

REPORT INFORMATION
  Report Type: 
  Country: None (occurrence: None)
  Receive Date: 20070925
  Receipt Date: 20070925
  Transmission Date: 20080115
  Serious: Yes (Other)
  Sender: FDA-Public Use
  Company Number: None

PATIENT
  Sex: Female

DRUGS (1)
  1. FORTEO [Suspect]
     Indication: OSTEOPOROSIS
     Dosage: 20 MCG  EVERY MORNING SQ
     Route: 058
     Dates: start: 20070529, end: 20070820

REACTIONS (4)
  - ARTHRALGIA [None]
  - FATIGUE [None]
  - INSOMNIA [None]
  - MUSCLE SPASMS [None]
